FAERS Safety Report 14175062 (Version 3)
Quarter: 2017Q4

REPORT INFORMATION
  Report Type: Report from Study
  Country: ES (occurrence: ES)
  Receive Date: 20171109
  Receipt Date: 20171127
  Transmission Date: 20180321
  Serious: Yes (Death, Other)
  Sender: FDA-Public Use
  Company Number: ES-UCBSA-2017035823

PATIENT
  Age: 74 Year
  Sex: Male

DRUGS (1)
  1. NEUPRO [Suspect]
     Active Substance: ROTIGOTINE
     Indication: PARKINSON^S DISEASE
     Dosage: 8 MG, ONCE DAILY (QD)
     Dates: start: 20170714

REACTIONS (4)
  - Aggression [Unknown]
  - Irritability [Unknown]
  - Arrhythmia [Unknown]
  - Choking [Fatal]

NARRATIVE: CASE EVENT DATE: 2017
